FAERS Safety Report 18663230 (Version 1)
Quarter: 2020Q4

REPORT INFORMATION
  Report Type: Spontaneous
  Country: CN (occurrence: CN)
  Receive Date: 20201224
  Receipt Date: 20201224
  Transmission Date: 20210114
  Serious: Yes (Hospitalization)
  Sender: FDA-Public Use
  Company Number: CN-ELI_LILLY_AND_COMPANY-CN202012012067

PATIENT
  Sex: Male
  Weight: 78 kg

DRUGS (1)
  1. CYMBALTA [Suspect]
     Active Substance: DULOXETINE HYDROCHLORIDE
     Indication: ANXIETY
     Dosage: 30 MG, DAILY
     Route: 048
     Dates: start: 20200520, end: 20201209

REACTIONS (4)
  - Sleep disorder [Recovering/Resolving]
  - Hyponatraemia [Recovering/Resolving]
  - Hypochloraemia [Recovering/Resolving]
  - Coronary artery disease [Recovering/Resolving]
